FAERS Safety Report 25079686 (Version 1)
Quarter: 2025Q1

REPORT INFORMATION
  Report Type: Spontaneous
  Country: US (occurrence: US)
  Receive Date: 20250314
  Receipt Date: 20250314
  Transmission Date: 20250409
  Serious: Yes (Other)
  Sender: PARATEK PHARMACEUTICALS
  Company Number: US-PARATEK PHARMACEUTICALS, INC.-2025PTK00309

PATIENT
  Age: 67 Year
  Sex: Female

DRUGS (3)
  1. OMADACYCLINE [Suspect]
     Active Substance: OMADACYCLINE
     Dates: start: 2024, end: 2024
  2. AMIKACIN [Concomitant]
     Active Substance: AMIKACIN
     Dates: start: 20240412, end: 2024
  3. IMIPENEM [Concomitant]
     Active Substance: IMIPENEM
     Dates: start: 20240412, end: 2024

REACTIONS (1)
  - Drug-induced liver injury [Unknown]

NARRATIVE: CASE EVENT DATE: 20240101
